FAERS Safety Report 18590444 (Version 1)
Quarter: 2020Q4

REPORT INFORMATION
  Report Type: Spontaneous
  Country: IT (occurrence: IT)
  Receive Date: 20201208
  Receipt Date: 20201208
  Transmission Date: 20210114
  Serious: Yes (Other)
  Sender: FDA-Public Use
  Company Number: IT-BIOGEN-2020BI00946969

PATIENT
  Age: 63 Year
  Sex: Female
  Weight: 60 kg

DRUGS (1)
  1. TECFIDERA [Suspect]
     Active Substance: DIMETHYL FUMARATE
     Indication: MULTIPLE SCLEROSIS
     Route: 048
     Dates: start: 20151023

REACTIONS (5)
  - Myalgia [Not Recovered/Not Resolved]
  - Cough [Not Recovered/Not Resolved]
  - Arthralgia [Not Recovered/Not Resolved]
  - Malaise [Not Recovered/Not Resolved]
  - COVID-19 [Not Recovered/Not Resolved]

NARRATIVE: CASE EVENT DATE: 20201104
